FAERS Safety Report 7770523-6 (Version None)
Quarter: 2011Q3

REPORT INFORMATION
  Report Type: 
  Country: None (occurrence: None)
  Receive Date: 20110922
  Receipt Date: 20101110
  Transmission Date: 20111222
  Serious: Yes (Death, Other)
  Sender: FDA-Public Use
  Company Number: US-ASTRAZENECA-2010SE53404

PATIENT
  Age: 46 Year
  Sex: Female

DRUGS (1)
  1. SEROQUEL XR [Suspect]
     Dosage: PATIENT TOOK 40 TABLETS.
     Route: 048

REACTIONS (3)
  - DEATH [None]
  - DYSPHAGIA [None]
  - ACCIDENTAL OVERDOSE [None]
